FAERS Safety Report 5204286-5 (Version None)
Quarter: 2007Q1

REPORT INFORMATION
  Report Type: 
  Country: None (occurrence: None)
  Receive Date: 20070110
  Receipt Date: 20060201
  Transmission Date: 20070707
  Serious: No
  Sender: FDA-Public Use
  Company Number: US-BRISTOL-MYERS SQUIBB COMPANY-13268255

PATIENT
  Age: 30 Year
  Sex: Male
  Weight: 86 kg

DRUGS (8)
  1. ABILIFY [Suspect]
     Indication: SCHIZOAFFECTIVE DISORDER
  2. PERMITIL [Concomitant]
  3. ZYPREXA [Concomitant]
  4. LITHIUM CARBONATE [Concomitant]
  5. TOPAMAX [Concomitant]
  6. LUVOX [Concomitant]
  7. CONCERTA [Concomitant]
  8. XANAX [Concomitant]

REACTIONS (2)
  - PYREXIA [None]
  - TREMOR [None]
